FAERS Safety Report 7092052-8 (Version None)
Quarter: 2010Q4

REPORT INFORMATION
  Report Type: 
  Country: None (occurrence: None)
  Receive Date: 20101109
  Receipt Date: 20080911
  Transmission Date: 20110411
  Serious: No
  Sender: FDA-Public Use
  Company Number: US-KINGPHARMUSA00001-K200801068

PATIENT
  Sex: Male
  Weight: 97.506 kg

DRUGS (6)
  1. SKELAXIN [Suspect]
     Indication: NEUROPATHY PERIPHERAL
     Dosage: 800 MG, QID
     Route: 048
     Dates: start: 20080901
  2. SKELAXIN [Suspect]
     Indication: EXOSTOSIS
  3. LODINE [Concomitant]
  4. LIPITOR [Concomitant]
  5. CLARITIN                           /00917501/ [Concomitant]
  6. SYNTHROID [Concomitant]
     Dosage: UNK, UNK

REACTIONS (1)
  - RASH MACULO-PAPULAR [None]
